FAERS Safety Report 9336033 (Version 1)
Quarter: 2013Q2

REPORT INFORMATION
  Report Type: Report from Study
  Country: AU (occurrence: AU)
  Receive Date: 20130607
  Receipt Date: 20130607
  Transmission Date: 20140414
  Serious: Yes (Disabling)
  Sender: FDA-Public Use
  Company Number: AU-ROCHE-1233954

PATIENT
  Sex: Male

DRUGS (6)
  1. ACTEMRA [Suspect]
     Indication: RHEUMATOID ARTHRITIS
     Route: 042
  2. NEXIUM [Concomitant]
     Indication: DYSPEPSIA
     Route: 048
  3. MICARDIS [Concomitant]
     Indication: BLOOD PRESSURE
     Route: 048
  4. METHOTREXATE [Concomitant]
     Route: 065
  5. FOLIC ACID [Concomitant]
     Route: 065
  6. ASPIRIN [Concomitant]
     Route: 048

REACTIONS (1)
  - Balance disorder [Not Recovered/Not Resolved]
